FAERS Safety Report 8991630 (Version 3)
Quarter: 2013Q2

REPORT INFORMATION
  Report Type: Spontaneous
  Country: US (occurrence: US)
  Receive Date: 20121231
  Receipt Date: 20130604
  Transmission Date: 20140414
  Serious: No
  Sender: FDA-Public Use
  Company Number: US-BIOGENIDEC-2012BI063840

PATIENT
  Age: 51 Year
  Sex: Female

DRUGS (1)
  1. TYSABRI [Suspect]
     Indication: MULTIPLE SCLEROSIS
     Route: 042
     Dates: start: 20101101

REACTIONS (6)
  - Emotional disorder [Not Recovered/Not Resolved]
  - Depressed mood [Recovered/Resolved]
  - Fear [Not Recovered/Not Resolved]
  - Tearfulness [Recovered/Resolved]
  - Stress [Recovered/Resolved]
  - Poor venous access [Recovered/Resolved]
